FAERS Safety Report 10065418 (Version 2)
Quarter: 2014Q2

REPORT INFORMATION
  Report Type: Spontaneous
  Country: JP (occurrence: JP)
  Receive Date: 20140408
  Receipt Date: 20140423
  Transmission Date: 20141212
  Serious: Yes (Hospitalization)
  Sender: FDA-Public Use
  Company Number: JP-GLAXOSMITHKLINE-B0979246A

PATIENT
  Age: 61 Year
  Sex: Female

DRUGS (9)
  1. LAMICTAL [Suspect]
     Indication: EPILEPSY
     Dosage: 25MG ALTERNATE DAYS
     Route: 048
     Dates: start: 20131004, end: 20131017
  2. LAMICTAL [Suspect]
     Indication: EPILEPSY
     Dosage: 25MG PER DAY
     Route: 048
     Dates: start: 20131018, end: 20131031
  3. LAMICTAL [Suspect]
     Indication: EPILEPSY
     Dosage: 50MG PER DAY
     Route: 048
     Dates: start: 20131101, end: 20131107
  4. LAMICTAL [Suspect]
     Indication: EPILEPSY
     Dosage: 75MG PER DAY
     Route: 048
     Dates: start: 20131108, end: 20131114
  5. LAMICTAL [Suspect]
     Indication: EPILEPSY
     Dosage: 50MG TWICE PER DAY
     Route: 048
     Dates: start: 20131115, end: 20131121
  6. LAMICTAL [Suspect]
     Indication: EPILEPSY
     Dosage: 62.5MG TWICE PER DAY
     Route: 048
     Dates: start: 20131122, end: 20131202
  7. LAMICTAL [Suspect]
     Indication: EPILEPSY
     Dosage: 100MG TWICE PER DAY
     Route: 048
     Dates: start: 20131203, end: 20140305
  8. DEPAKENE-R [Concomitant]
     Indication: EPILEPSY
     Dosage: 200MG FOUR TIMES PER DAY
     Route: 048
     Dates: start: 20081202, end: 20140304
  9. E KEPPRA [Concomitant]
     Indication: EPILEPSY
     Dosage: 500MG PER DAY
     Route: 048
     Dates: start: 20130221, end: 20140304

REACTIONS (3)
  - Mucous membrane disorder [Recovered/Resolved]
  - Rash [Unknown]
  - Oral disorder [Unknown]
